FAERS Safety Report 21159870 (Version 1)
Quarter: 2022Q3

REPORT INFORMATION
  Report Type: Spontaneous
  Country: US (occurrence: US)
  Receive Date: 20220802
  Receipt Date: 20220802
  Transmission Date: 20221026
  Serious: Yes (Other)
  Sender: FDA-Public Use
  Company Number: US-AMGEN-USASP2022125918

PATIENT
  Age: 56 Year
  Sex: Male

DRUGS (1)
  1. RITUXIMAB [Suspect]
     Active Substance: RITUXIMAB
     Indication: Epstein-Barr virus infection
     Dosage: UNK
     Route: 065

REACTIONS (6)
  - Stress cardiomyopathy [Recovering/Resolving]
  - Cerebral haemorrhage [Unknown]
  - Arteriosclerosis coronary artery [Unknown]
  - Acute kidney injury [Unknown]
  - Acute respiratory failure [Recovering/Resolving]
  - Off label use [Unknown]
